FAERS Safety Report 13196583 (Version 1)
Quarter: 2017Q1

REPORT INFORMATION
  Report Type: Spontaneous
  Country: CZ (occurrence: CZ)
  Receive Date: 20170208
  Receipt Date: 20170208
  Transmission Date: 20170428
  Serious: Yes (Other)
  Sender: FDA-Public Use
  Company Number: CZ-ELI_LILLY_AND_COMPANY-CZ201702002190

PATIENT
  Age: 66 Year

DRUGS (4)
  1. FOLINIC ACID [Suspect]
     Active Substance: LEUCOVORIN
     Indication: RECTAL CANCER
     Dosage: UNK UNK, UNKNOWN
     Route: 065
     Dates: start: 201604, end: 201608
  2. OXALIPLATIN. [Suspect]
     Active Substance: OXALIPLATIN
     Indication: RECTAL CANCER
     Dosage: UNK UNK, UNKNOWN
     Route: 065
     Dates: start: 201604, end: 201608
  3. ERBITUX [Suspect]
     Active Substance: CETUXIMAB
     Indication: RECTAL CANCER
     Dosage: UNK
     Route: 065
     Dates: start: 201604, end: 201608
  4. FLUOROURACIL. [Suspect]
     Active Substance: FLUOROURACIL
     Indication: RECTAL CANCER
     Dosage: UNK UNK, UNKNOWN
     Route: 065
     Dates: start: 201604, end: 201608

REACTIONS (6)
  - Febrile neutropenia [Unknown]
  - Neuropathy peripheral [Unknown]
  - Vomiting [Recovering/Resolving]
  - Skin toxicity [Recovered/Resolved]
  - Nausea [Recovering/Resolving]
  - Fatigue [Unknown]

NARRATIVE: CASE EVENT DATE: 2016
